FAERS Safety Report 4662582-4 (Version None)
Quarter: 2005Q2

REPORT INFORMATION
  Report Type: 
  Country: None (occurrence: None)
  Receive Date: 20050512
  Receipt Date: 20050429
  Transmission Date: 20051028
  Serious: Yes (Other)
  Sender: FDA-Public Use
  Company Number: FR-2005-006753

PATIENT
  Sex: Female

DRUGS (1)
  1. MIRENA [Suspect]
     Indication: CONTRACEPTION
     Dosage: 20 MG/DAY, CONT, INTRA-UTERINE
     Route: 015
     Dates: start: 20021001

REACTIONS (2)
  - LOWER LIMB FRACTURE [None]
  - THROMBOSIS [None]
